FAERS Safety Report 9364845 (Version 1)
Quarter: 2013Q2

REPORT INFORMATION
  Report Type: Report from Study
  Country: US (occurrence: US)
  Receive Date: 20130624
  Receipt Date: 20130624
  Transmission Date: 20140414
  Serious: Yes (Death, Other)
  Sender: FDA-Public Use
  Company Number: US-BAYER-2013-075584

PATIENT
  Age: 42 Year
  Sex: Male

DRUGS (3)
  1. ASPIRIN [Suspect]
     Indication: ANTIPLATELET THERAPY
     Dosage: DAILY DOSE 325 MG
     Route: 048
  2. CLOPIDOGREL [Suspect]
     Indication: ANTIPLATELET THERAPY
     Dosage: DAILY DOSE 75 MG
     Route: 048
  3. HEPARIN [Concomitant]

REACTIONS (5)
  - Subarachnoid haemorrhage [Fatal]
  - Aneurysm ruptured [None]
  - Ischaemic stroke [None]
  - Dysarthria [None]
  - Hemiparesis [None]
